FAERS Safety Report 13010349 (Version 1)
Quarter: 2016Q4

REPORT INFORMATION
  Report Type: Spontaneous
  Country: US (occurrence: US)
  Receive Date: 20161208
  Receipt Date: 20161208
  Transmission Date: 20170207
  Serious: Yes (Other)
  Sender: FDA-Public Use
  Company Number: US-SUNOVION-2016SUN003021

PATIENT
  Age: 79 Year
  Sex: Female
  Weight: 77.98 kg

DRUGS (5)
  1. BENICAR [Concomitant]
     Active Substance: OLMESARTAN MEDOXOMIL
     Dosage: 10 MG, QD
     Route: 048
  2. LUNESTA [Suspect]
     Active Substance: ESZOPICLONE
     Indication: INSOMNIA
     Dosage: 3 MG, UNK
     Route: 048
     Dates: start: 2015
  3. DOXEPIN [Concomitant]
     Active Substance: DOXEPIN
     Dosage: 25 MG, QD (EVENING)
     Route: 048
  4. LUNESTA [Suspect]
     Active Substance: ESZOPICLONE
     Indication: ANXIETY
  5. GABAPENTIN. [Concomitant]
     Active Substance: GABAPENTIN
     Dosage: 100 MG, QD (EVENING)
     Route: 048

REACTIONS (7)
  - Labyrinthitis [Unknown]
  - Tinnitus [Not Recovered/Not Resolved]
  - Prescribed overdose [Unknown]
  - Sinusitis [Unknown]
  - Insomnia [Not Recovered/Not Resolved]
  - Drug ineffective [Unknown]
  - Off label use [Unknown]

NARRATIVE: CASE EVENT DATE: 2015
